FAERS Safety Report 17052682 (Version 2)
Quarter: 2020Q1

REPORT INFORMATION
  Report Type: Report from Study
  Country: US (occurrence: US)
  Receive Date: 20191120
  Receipt Date: 20200102
  Transmission Date: 20200409
  Serious: Yes (Death)
  Sender: FDA-Public Use
  Company Number: US-CELGENEUS-USA-20191106393

PATIENT
  Age: 77 Year
  Sex: Female
  Weight: 56 kg

DRUGS (7)
  1. ACYCLOVIR. [Concomitant]
     Active Substance: ACYCLOVIR
     Indication: VIRAL INFECTION
     Dosage: 800 MILLIGRAM
     Route: 048
     Dates: start: 20170504
  2. PANTOPRAZOLE [Concomitant]
     Active Substance: PANTOPRAZOLE
     Indication: GASTROOESOPHAGEAL REFLUX DISEASE
     Dosage: 40 MILLIGRAM
     Route: 048
     Dates: start: 20170525
  3. AZACITIDINE. [Suspect]
     Active Substance: AZACITIDINE
     Indication: ACUTE MYELOID LEUKAEMIA
     Dosage: 150 MILLIGRAM
     Route: 065
     Dates: start: 20170427
  4. FLUCONAZOLE. [Concomitant]
     Active Substance: FLUCONAZOLE
     Indication: FUNGAL INFECTION
     Dosage: 400 MILLIGRAM
     Route: 048
     Dates: start: 20170504
  5. LEVOTHYROXINE. [Concomitant]
     Active Substance: LEVOTHYROXINE
     Indication: HYPOTHYROIDISM
     Dosage: 62.5 MICROGRAM
     Route: 048
     Dates: start: 20170504
  6. AZACITIDINE. [Suspect]
     Active Substance: AZACITIDINE
     Route: 065
     Dates: start: 201705, end: 20181119
  7. DENOSUMAB [Concomitant]
     Active Substance: DENOSUMAB
     Indication: OSTEOPOROSIS
     Dosage: 60 MICROGRAM
     Route: 058
     Dates: start: 20170425

REACTIONS (1)
  - Death [Fatal]

NARRATIVE: CASE EVENT DATE: 20181119
